FAERS Safety Report 20992601 (Version 1)
Quarter: 2022Q2

REPORT INFORMATION
  Report Type: Spontaneous
  Country: SG (occurrence: SG)
  Receive Date: 20220622
  Receipt Date: 20220622
  Transmission Date: 20220721
  Serious: Yes (Other)
  Sender: FDA-Public Use
  Company Number: SG-009507513-2206SGP002911

PATIENT
  Age: 6 Decade
  Sex: Male

DRUGS (1)
  1. PEMBROLIZUMAB [Suspect]
     Active Substance: PEMBROLIZUMAB
     Indication: Non-small cell lung cancer
     Dosage: UNK

REACTIONS (3)
  - Thyroid gland injury [Unknown]
  - Arthralgia [Unknown]
  - Musculoskeletal stiffness [Unknown]
